FAERS Safety Report 9697362 (Version 3)
Quarter: 2014Q2

REPORT INFORMATION
  Report Type: Report from Study
  Country: JP (occurrence: JP)
  Receive Date: 20131120
  Receipt Date: 20140425
  Transmission Date: 20141212
  Serious: Yes (Hospitalization)
  Sender: FDA-Public Use
  Company Number: JP-JNJFOC-20131108499

PATIENT
  Age: 68 Year
  Sex: Male
  Weight: 69 kg

DRUGS (13)
  1. STELARA [Suspect]
     Indication: PSORIASIS
     Route: 058
     Dates: start: 20130129, end: 20130129
  2. STELARA [Suspect]
     Indication: PSORIASIS
     Route: 058
     Dates: start: 20130226, end: 20130226
  3. STELARA [Suspect]
     Indication: PSORIASIS
     Route: 058
     Dates: start: 20130521, end: 20130521
  4. STELARA [Suspect]
     Indication: PSORIASIS
     Route: 058
     Dates: start: 20131105, end: 20131105
  5. STELARA [Suspect]
     Indication: PSORIASIS
     Route: 058
     Dates: start: 20140126
  6. STELARA [Suspect]
     Indication: PSORIASIS
     Route: 058
     Dates: start: 20130817, end: 20130817
  7. TIGASON [Concomitant]
     Indication: PSORIASIS
     Route: 048
     Dates: start: 20130123, end: 20130226
  8. ALLELOCK [Concomitant]
     Indication: PSORIASIS
     Route: 048
     Dates: start: 20130115, end: 20130521
  9. FULMETA [Concomitant]
     Indication: PSORIASIS
     Dosage: Q.S
     Route: 061
  10. OXAROL [Concomitant]
     Indication: PSORIASIS
     Dosage: Q.S
     Route: 061
  11. ANTEBATE [Concomitant]
     Indication: PSORIASIS
     Dosage: Q.S
     Route: 061
  12. ALESION [Concomitant]
     Indication: PSORIASIS
     Route: 048
     Dates: start: 20130522, end: 20140127
  13. ALLELOCK [Concomitant]
     Route: 048
     Dates: start: 20140108

REACTIONS (1)
  - Prostatitis [Recovered/Resolved]
